FAERS Safety Report 6812922-2 (Version None)
Quarter: 2010Q3

REPORT INFORMATION
  Report Type: 
  Country: None (occurrence: None)
  Receive Date: 20100701
  Receipt Date: 20100622
  Transmission Date: 20110219
  Serious: Yes (Hospitalization, Other)
  Sender: FDA-Public Use
  Company Number: BR-WYE-H15852110

PATIENT
  Sex: Female

DRUGS (4)
  1. EFFEXOR XR [Suspect]
     Indication: DEPRESSION
     Route: 048
     Dates: start: 20100101
  2. MIRTAZAPINE [Concomitant]
     Indication: DEPRESSION
  3. DIOVAN [Concomitant]
     Indication: HYPERTENSION
     Dosage: 160 MG, FREQUENCY UNKNOWN
  4. ACTOS [Concomitant]
     Indication: DIABETES MELLITUS
     Dates: start: 20091001

REACTIONS (12)
  - BRONCHOSPASM [None]
  - BUNDLE BRANCH BLOCK LEFT [None]
  - CHRONIC OBSTRUCTIVE PULMONARY DISEASE [None]
  - CONDITION AGGRAVATED [None]
  - CORONARY ARTERY DISEASE [None]
  - DIABETES MELLITUS [None]
  - FEELING HOT [None]
  - HYPERCHOLESTEROLAEMIA [None]
  - HYPERTENSION [None]
  - MYOCARDIAL INFARCTION [None]
  - VENTRICULAR HYPOKINESIA [None]
  - VITAMIN D DEFICIENCY [None]
